FAERS Safety Report 15955254 (Version 2)
Quarter: 2019Q1

REPORT INFORMATION
  Report Type: Spontaneous
  Country: US (occurrence: US)
  Receive Date: 20190213
  Receipt Date: 20190214
  Transmission Date: 20190417
  Serious: No
  Sender: FDA-Public Use
  Company Number: US-BEH-2019099441

PATIENT
  Sex: Female

DRUGS (1)
  1. PRIVIGEN [Suspect]
     Active Substance: HUMAN IMMUNOGLOBULIN G
     Indication: PRODUCT USED FOR UNKNOWN INDICATION
     Dosage: UNK, QMT
     Route: 065

REACTIONS (4)
  - Abdominal distension [Not Recovered/Not Resolved]
  - Blood pressure abnormal [Unknown]
  - Alopecia [Not Recovered/Not Resolved]
  - Constipation [Unknown]
